FAERS Safety Report 22392300 (Version 1)
Quarter: 2023Q2

REPORT INFORMATION
  Report Type: Spontaneous
  Country: US (occurrence: US)
  Receive Date: 20230601
  Receipt Date: 20230601
  Transmission Date: 20230721
  Serious: No
  Sender: FDA-Public Use
  Company Number: US-AMGEN-USASP2023093612

PATIENT
  Age: 68 Year
  Sex: Male

DRUGS (5)
  1. REPATHA [Suspect]
     Active Substance: EVOLOCUMAB
     Indication: Product used for unknown indication
     Dosage: UNK
     Route: 065
     Dates: start: 20230514
  2. TRULICITY [Concomitant]
     Active Substance: DULAGLUTIDE
     Indication: Product used for unknown indication
  3. TRULICITY [Concomitant]
     Active Substance: DULAGLUTIDE
     Route: 065
  4. TRESIBA [Concomitant]
     Active Substance: INSULIN DEGLUDEC
     Indication: Product used for unknown indication
  5. TRESIBA [Concomitant]
     Active Substance: INSULIN DEGLUDEC
     Route: 065

REACTIONS (1)
  - Drug dose omission by device [Unknown]

NARRATIVE: CASE EVENT DATE: 20230514
